FAERS Safety Report 6387474-4 (Version None)
Quarter: 2009Q4

REPORT INFORMATION
  Report Type: 
  Country: None (occurrence: None)
  Receive Date: 20091005
  Receipt Date: 20090922
  Transmission Date: 20100525
  Serious: Yes (Hospitalization, Other)
  Sender: FDA-Public Use
  Company Number: US-BIOGENIDEC-2007BI009249

PATIENT
  Age: 39 Year
  Sex: Female

DRUGS (1)
  1. AVONEX [Suspect]
     Indication: MULTIPLE SCLEROSIS
     Route: 030
     Dates: start: 19960901, end: 20050701

REACTIONS (6)
  - FATIGUE [None]
  - MULTIPLE SCLEROSIS RELAPSE [None]
  - OPEN FRACTURE [None]
  - PARTIAL SEIZURES [None]
  - PYREXIA [None]
  - STRESS [None]
